FAERS Safety Report 15869346 (Version 6)
Quarter: 2019Q2

REPORT INFORMATION
  Report Type: Report from Study
  Country: US (occurrence: US)
  Receive Date: 20190125
  Receipt Date: 20190430
  Transmission Date: 20190711
  Serious: Yes (Death, Hospitalization)
  Sender: FDA-Public Use
  Company Number: US-ACTELION-A-US2017-161708

PATIENT
  Age: 71 Year
  Sex: Female
  Weight: 47.62 kg

DRUGS (7)
  1. LASIX [Concomitant]
     Active Substance: FUROSEMIDE
     Dosage: UNK
     Route: 042
  2. VELETRI [Suspect]
     Active Substance: EPOPROSTENOL
     Dosage: 22 NG/KG, PER MIN
     Route: 042
  3. VELETRI [Suspect]
     Active Substance: EPOPROSTENOL
     Dosage: 24 NG/KG, PER MIN
     Route: 042
  4. ADCIRCA [Concomitant]
     Active Substance: TADALAFIL
  5. VELETRI [Suspect]
     Active Substance: EPOPROSTENOL
     Indication: PULMONARY ARTERIAL HYPERTENSION
     Dosage: 12 NG/KG, PER MIN
     Route: 042
  6. VELETRI [Suspect]
     Active Substance: EPOPROSTENOL
     Dosage: 23 UNK
     Route: 042
  7. LASIX [Concomitant]
     Active Substance: FUROSEMIDE
     Dosage: 80 MG, UNK
     Route: 048

REACTIONS (26)
  - Death [Fatal]
  - Catheter site pain [Unknown]
  - Pain in jaw [Not Recovered/Not Resolved]
  - Fluid retention [Unknown]
  - Urosepsis [Unknown]
  - Peripheral swelling [Unknown]
  - Fluid overload [Unknown]
  - Prescribed overdose [Unknown]
  - Pneumonia [Unknown]
  - Dyspepsia [Unknown]
  - Flushing [Unknown]
  - Headache [Unknown]
  - Diarrhoea [Unknown]
  - Abdominal distension [Unknown]
  - Chronic obstructive pulmonary disease [Unknown]
  - Constipation [Unknown]
  - Dyspnoea [Unknown]
  - Nausea [Unknown]
  - Vomiting [Unknown]
  - Hospice care [Unknown]
  - Hospitalisation [Unknown]
  - Cardiac failure [Unknown]
  - Oedema peripheral [Unknown]
  - Cystitis [Unknown]
  - Dry mouth [Unknown]
  - Fatigue [Unknown]

NARRATIVE: CASE EVENT DATE: 20190420
